FAERS Safety Report 12011203 (Version 2)
Quarter: 2016Q1

REPORT INFORMATION
  Report Type: Spontaneous
  Country: US (occurrence: US)
  Receive Date: 20160205
  Receipt Date: 20160225
  Transmission Date: 20160526
  Serious: Yes (Hospitalization, Other)
  Sender: FDA-Public Use
  Company Number: US-CELGENEUS-USA-2016012926

PATIENT
  Age: 65 Year
  Sex: Male

DRUGS (5)
  1. HYDROCODONE-APAP [Concomitant]
     Active Substance: ACETAMINOPHEN\HYDROCODONE
     Indication: PAIN
     Dosage: 7.5-325MG
     Route: 048
  2. ASPIRIN. [Concomitant]
     Active Substance: ASPIRIN
     Indication: PRODUCT USED FOR UNKNOWN INDICATION
     Route: 065
     Dates: start: 20160111
  3. DEXAMETHASONE. [Concomitant]
     Active Substance: DEXAMETHASONE
     Indication: PRODUCT USED FOR UNKNOWN INDICATION
     Route: 065
     Dates: start: 20160111
  4. REVLIMID [Suspect]
     Active Substance: LENALIDOMIDE
     Indication: PLASMA CELL MYELOMA
     Route: 048
     Dates: start: 20160106
  5. REVLIMID [Suspect]
     Active Substance: LENALIDOMIDE
     Route: 048
     Dates: start: 20160111

REACTIONS (11)
  - Fall [Unknown]
  - Dehydration [Unknown]
  - Hypoaesthesia [Unknown]
  - Dizziness [Unknown]
  - Aphonia [Unknown]
  - Constipation [Unknown]
  - Diarrhoea [Unknown]
  - Renal impairment [Unknown]
  - Muscular weakness [Unknown]
  - Back pain [Unknown]
  - Nausea [Unknown]

NARRATIVE: CASE EVENT DATE: 2016
